FAERS Safety Report 7715172-0 (Version None)
Quarter: 2011Q3

REPORT INFORMATION
  Report Type: 
  Country: None (occurrence: None)
  Receive Date: 20110829
  Receipt Date: 20110819
  Transmission Date: 20111222
  Serious: No
  Sender: FDA-Public Use
  Company Number: PHEH2011US00691

PATIENT
  Sex: Male

DRUGS (2)
  1. TASIGNA [Suspect]
     Indication: CHRONIC MYELOID LEUKAEMIA
     Dosage: 300 MG, BID
     Route: 048
  2. ONDANSETRON [Concomitant]
     Dosage: 4 MG, UNK

REACTIONS (3)
  - NAUSEA [None]
  - GASTRIC DISORDER [None]
  - FATIGUE [None]
